FAERS Safety Report 24578911 (Version 1)
Quarter: 2024Q4

REPORT INFORMATION
  Report Type: Spontaneous
  Country: US (occurrence: US)
  Receive Date: 20241105
  Receipt Date: 20241105
  Transmission Date: 20250114
  Serious: No
  Sender: AMGEN
  Company Number: US-AMGEN-USASP2024215412

PATIENT
  Age: 17 Year
  Sex: Female

DRUGS (3)
  1. PREDNISONE [Suspect]
     Active Substance: PREDNISONE
     Indication: Product used for unknown indication
     Dosage: UNK
     Route: 048
  2. METHYLPREDNISOLONE [Concomitant]
     Active Substance: METHYLPREDNISOLONE
     Indication: Blindness
     Dosage: 1000 MILLIGRAM (FOR 5 DAYS)
     Route: 040
  3. THIAMINE [Concomitant]
     Active Substance: THIAMINE
     Indication: Blindness
     Dosage: 500 MILLIGRAM, Q8H (FOR 3 DAYS)
     Route: 040

REACTIONS (1)
  - Drug ineffective [Unknown]
